FAERS Safety Report 6649788-X (Version None)
Quarter: 2010Q1

REPORT INFORMATION
  Report Type: 
  Country: None (occurrence: None)
  Receive Date: 20100322
  Receipt Date: 20100309
  Transmission Date: 20100710
  Serious: Yes (Hospitalization, Other)
  Sender: FDA-Public Use
  Company Number: 233634J09USA

PATIENT
  Age: 51 Year
  Sex: Female
  Weight: 105 kg

DRUGS (8)
  1. REBIF [Suspect]
     Indication: MULTIPLE SCLEROSIS
     Dosage: 44 MCG, 3 IN 1 WEEKS,SUBCUTANEOUS
     Route: 058
     Dates: start: 20060220, end: 20090101
  2. REBIF [Suspect]
     Indication: MULTIPLE SCLEROSIS
     Dosage: 44 MCG, 3 IN 1 WEEKS,SUBCUTANEOUS
     Route: 058
     Dates: start: 20091001, end: 20100211
  3. LEVOTHYROXINE (LEVOTHROXINE) [Concomitant]
  4. VITAMIN D (ERGOCALIFEROL) [Concomitant]
  5. METOPROLOL (METOPROLOL) [Concomitant]
  6. BENICAR HCT (BENICAR HCT) [Concomitant]
  7. CALICUM (CALICUM-SANDOZ /00009901/) [Concomitant]
  8. SIMVASTATIN [Concomitant]

REACTIONS (2)
  - BREAST CANCER FEMALE [None]
  - CELLULITIS [None]
